FAERS Safety Report 7039094-6 (Version None)
Quarter: 2010Q4

REPORT INFORMATION
  Report Type: 
  Country: None (occurrence: None)
  Receive Date: 20101012
  Receipt Date: 20100930
  Transmission Date: 20110411
  Serious: Yes (Congenital Anomaly)
  Sender: FDA-Public Use
  Company Number: DE-JNJFOC-20101000081

PATIENT

DRUGS (2)
  1. PREZISTA [Suspect]
     Indication: DRUG EXPOSURE DURING PREGNANCY
     Route: 064
  2. DRUG NOT SPECIFIED [Concomitant]
     Route: 064

REACTIONS (1)
  - CONGENITAL ANOMALY [None]
